FAERS Safety Report 14870917 (Version 5)
Quarter: 2020Q2

REPORT INFORMATION
  Report Type: Spontaneous
  Country: FR (occurrence: FR)
  Receive Date: 20180509
  Receipt Date: 20200429
  Transmission Date: 20200713
  Serious: Yes (Death, Hospitalization)
  Sender: FDA-Public Use
  Company Number: FR-SEPTODONT-201804649

PATIENT
  Age: 75 Year
  Sex: Female
  Weight: 60 kg

DRUGS (7)
  1. ATARAX [Concomitant]
     Active Substance: HYDROXYZINE HYDROCHLORIDE
     Indication: ANAESTHESIA
     Route: 048
     Dates: start: 20180324, end: 20180324
  2. RYTHMOL [Concomitant]
     Active Substance: PROPAFENONE HYDROCHLORIDE
     Indication: ARRHYTHMIA
     Route: 048
     Dates: start: 201610
  3. ACUPAN [Concomitant]
     Active Substance: NEFOPAM HYDROCHLORIDE
     Indication: ANAESTHESIA
     Route: 042
     Dates: start: 20180324, end: 20180324
  4. SEPTANEST ADRENALINEE [Suspect]
     Active Substance: ARTICAINE HYDROCHLORIDE\EPINEPHRINE BITARTRATE
     Indication: DENTAL LOCAL ANAESTHESIA
     Dosage: 10 TO 11 CARTRIDGES (UNSPECIFIED EXACT DOSAGE).
     Route: 004
     Dates: start: 20180324, end: 20180324
  5. PROFENID [Concomitant]
     Active Substance: KETOPROFEN
     Indication: ANAESTHESIA
     Route: 042
     Dates: start: 20180324, end: 20180324
  6. PERFALGAN [Concomitant]
     Active Substance: ACETAMINOPHEN
     Indication: ANAESTHESIA
     Route: 042
     Dates: start: 20180324, end: 20180324
  7. VALIUM [Concomitant]
     Active Substance: DIAZEPAM
     Indication: ANAESTHESIA
     Route: 048
     Dates: start: 20180324, end: 20180324

REACTIONS (7)
  - Cardio-respiratory arrest [Fatal]
  - Intentional overdose [Fatal]
  - Drug interaction [Fatal]
  - Contraindicated product administered [Fatal]
  - Cardiac arrest [Fatal]
  - Death [Fatal]
  - Seizure [Fatal]

NARRATIVE: CASE EVENT DATE: 201803
